FAERS Safety Report 16712119 (Version 1)
Quarter: 2019Q3

REPORT INFORMATION
  Report Type: Spontaneous
  Country: US (occurrence: US)
  Receive Date: 20190816
  Receipt Date: 20190816
  Transmission Date: 20191004
  Serious: Yes (Hospitalization)
  Sender: FDA-Public Use
  Company Number: US-GLAXOSMITHKLINE-US2019147722

PATIENT
  Age: 43 Year
  Sex: Female

DRUGS (1)
  1. BENLYSTA [Suspect]
     Active Substance: BELIMUMAB
     Indication: PRODUCT USED FOR UNKNOWN INDICATION
     Dosage: UNK, CYC
     Route: 042
     Dates: start: 20190627

REACTIONS (6)
  - Weight increased [Recovered/Resolved]
  - Dyspnoea [Recovered/Resolved]
  - Fluid overload [Recovered/Resolved]
  - Confusional state [Recovered/Resolved]
  - Weight decreased [Unknown]
  - Hyperhidrosis [Recovered/Resolved]

NARRATIVE: CASE EVENT DATE: 20190628
